FAERS Safety Report 4701297-0 (Version None)
Quarter: 2005Q2

REPORT INFORMATION
  Report Type: 
  Country: None (occurrence: None)
  Receive Date: 20050628
  Receipt Date: 20050617
  Transmission Date: 20051028
  Serious: Yes (Death)
  Sender: FDA-Public Use
  Company Number: GB-MERCK-0506GBR00147

PATIENT
  Age: 60 Year
  Sex: Male

DRUGS (1)
  1. CANCIDAS [Suspect]
     Indication: LOCALISED INFECTION
     Route: 051

REACTIONS (1)
  - DEATH [None]
